FAERS Safety Report 13435389 (Version 4)
Quarter: 2018Q2

REPORT INFORMATION
  Report Type: Spontaneous
  Country: IT (occurrence: IT)
  Receive Date: 20170412
  Receipt Date: 20180413
  Transmission Date: 20180711
  Serious: Yes (Hospitalization, Other)
  Sender: FDA-Public Use
  Company Number: IT-PFIZER INC-2017158040

PATIENT
  Age: 79 Year
  Sex: Female

DRUGS (4)
  1. ALENDRONATE SODIUM. [Concomitant]
     Active Substance: ALENDRONATE SODIUM
     Dosage: 70 MG, UNK
     Route: 048
  2. METHOTREXATE SODIUM. [Suspect]
     Active Substance: METHOTREXATE SODIUM
     Indication: RHEUMATOID ARTHRITIS
     Dosage: 10 MG, WEEKLY
     Route: 048
     Dates: start: 20080101, end: 20170407
  3. PLAQUENIL /00072602/ [Suspect]
     Active Substance: HYDROXYCHLOROQUINE DIPHOSPHATE
     Indication: RHEUMATOID ARTHRITIS
     Dosage: 200 MG, DAILY
     Route: 048
     Dates: start: 20080101, end: 20170407
  4. SIMPONI [Suspect]
     Active Substance: GOLIMUMAB
     Indication: RHEUMATOID ARTHRITIS
     Dosage: 50 MG, MONTHLY
     Route: 058
     Dates: start: 20150601, end: 20170328

REACTIONS (1)
  - Colon cancer stage II [Recovered/Resolved]

NARRATIVE: CASE EVENT DATE: 20170201
